FAERS Safety Report 12658189 (Version 1)
Quarter: 2016Q3

REPORT INFORMATION
  Report Type: Spontaneous
  Country: US (occurrence: US)
  Receive Date: 20160817
  Receipt Date: 20160817
  Transmission Date: 20161109
  Serious: No
  Sender: FDA-Public Use
  Company Number: US-BEH-2016072178

PATIENT
  Sex: Female
  Weight: 90.7 kg

DRUGS (49)
  1. CEFUROXIME                         /00454602/ [Concomitant]
  2. CHAMOMILE                          /00512601/ [Concomitant]
  3. XANAX [Concomitant]
     Active Substance: ALPRAZOLAM
  4. PERCOCET                           /00446701/ [Concomitant]
     Active Substance: ACETAMINOPHEN\OXYCODONE HYDROCHLORIDE\OXYCODONE TEREPHTHALATE
  5. BENEFIBER                          /00677201/ [Concomitant]
     Active Substance: ICODEXTRIN
  6. HIZENTRA [Suspect]
     Active Substance: HUMAN IMMUNOGLOBULIN G
     Dosage: 10 G, QW
     Route: 058
     Dates: start: 20141212
  7. MUCINEX [Concomitant]
     Active Substance: GUAIFENESIN
  8. LASIX [Concomitant]
     Active Substance: FUROSEMIDE
  9. VALTREX [Concomitant]
     Active Substance: VALACYCLOVIR HYDROCHLORIDE
  10. PHRENILIN [Concomitant]
     Active Substance: ACETAMINOPHEN\BUTALBITAL
  11. AMITIZA [Concomitant]
     Active Substance: LUBIPROSTONE
  12. CYMBALTA [Concomitant]
     Active Substance: DULOXETINE HYDROCHLORIDE
  13. VALTREX [Concomitant]
     Active Substance: VALACYCLOVIR HYDROCHLORIDE
  14. VITAMIN D                          /00107901/ [Concomitant]
     Active Substance: ERGOCALCIFEROL
  15. XARELTO [Concomitant]
     Active Substance: RIVAROXABAN
  16. HIZENTRA [Suspect]
     Active Substance: HUMAN IMMUNOGLOBULIN G
     Indication: IMMUNODEFICIENCY COMMON VARIABLE
     Dosage: UNK
     Route: 058
  17. RIZATRIPTAN                        /01406502/ [Concomitant]
  18. FLONASE [Concomitant]
     Active Substance: FLUTICASONE PROPIONATE
  19. HYDROXYZINE [Concomitant]
     Active Substance: HYDROXYZINE\HYDROXYZINE HYDROCHLORIDE
  20. MIRALAX [Concomitant]
     Active Substance: POLYETHYLENE GLYCOL 3350
  21. COLACE [Concomitant]
     Active Substance: DOCUSATE SODIUM
  22. VIBRAMYCIN [Concomitant]
     Active Substance: DOXYCYCLINE
  23. FEXOFENADINE [Concomitant]
     Active Substance: FEXOFENADINE\FEXOFENADINE HYDROCHLORIDE
  24. MIRAPEX [Concomitant]
     Active Substance: PRAMIPEXOLE DIHYDROCHLORIDE
  25. DOXYCYCLINE                        /00055702/ [Concomitant]
     Active Substance: DOXYCYCLINE
  26. LISINOPRIL. [Concomitant]
     Active Substance: LISINOPRIL
  27. SYMBICORT [Concomitant]
     Active Substance: BUDESONIDE\FORMOTEROL FUMARATE DIHYDRATE
  28. RESTORIL [Concomitant]
     Active Substance: TEMAZEPAM
  29. LINZESS [Concomitant]
     Active Substance: LINACLOTIDE
  30. MULTIVITAMIN                       /00097801/ [Concomitant]
     Active Substance: VITAMINS
  31. VICODIN [Concomitant]
     Active Substance: ACETAMINOPHEN\HYDROCODONE BITARTRATE
  32. HIZENTRA [Suspect]
     Active Substance: HUMAN IMMUNOGLOBULIN G
     Dosage: UNK
     Route: 058
  33. SINGULAIR MINI [Concomitant]
     Active Substance: MONTELUKAST SODIUM
  34. TRAMADOL. [Concomitant]
     Active Substance: TRAMADOL
  35. LEVALBUTEROL. [Concomitant]
     Active Substance: LEVALBUTEROL
  36. TEA, GREEN [Concomitant]
     Active Substance: GREEN TEA LEAF
  37. TYLENOL [Concomitant]
     Active Substance: ACETAMINOPHEN
  38. CALCIUM [Concomitant]
     Active Substance: CALCIUM
  39. ZOCOR [Concomitant]
     Active Substance: SIMVASTATIN
  40. PANTOPRAZOLE [Concomitant]
     Active Substance: PANTOPRAZOLE SODIUM
  41. LIPITOR [Concomitant]
     Active Substance: ATORVASTATIN CALCIUM
  42. CARDIZEM [Concomitant]
     Active Substance: DILTIAZEM HYDROCHLORIDE
  43. BENADRYL [Concomitant]
     Active Substance: DIPHENHYDRAMINE HYDROCHLORIDE
  44. PROAIR HFA [Concomitant]
     Active Substance: ALBUTEROL SULFATE
  45. COUMADIN [Concomitant]
     Active Substance: WARFARIN SODIUM
  46. GABAPENTIN. [Concomitant]
     Active Substance: GABAPENTIN
  47. SLEEP AID                          /00000402/ [Concomitant]
     Active Substance: DIPHENHYDRAMINE HYDROCHLORIDE
  48. XOPENEX [Concomitant]
     Active Substance: LEVALBUTEROL HYDROCHLORIDE
  49. ALENDRONATE [Concomitant]
     Active Substance: ALENDRONATE SODIUM

REACTIONS (1)
  - Hypersensitivity [Unknown]
